FAERS Safety Report 15708602 (Version 1)
Quarter: 2018Q4

REPORT INFORMATION
  Report Type: Report from Study
  Country: CN (occurrence: CN)
  Receive Date: 20181211
  Receipt Date: 20181211
  Transmission Date: 20190205
  Serious: Yes (Other)
  Sender: FDA-Public Use
  Company Number: CN-ROCHE-2226685

PATIENT

DRUGS (2)
  1. OXALIPLATIN. [Suspect]
     Active Substance: OXALIPLATIN
     Indication: RECTAL CANCER
     Dosage: ON DAY 1
     Route: 065
  2. CAPECITABINE. [Suspect]
     Active Substance: CAPECITABINE
     Indication: RECTAL CANCER
     Dosage: DAY 1-14
     Route: 065

REACTIONS (6)
  - Thrombocytopenia [Unknown]
  - Proctalgia [Unknown]
  - Diarrhoea [Unknown]
  - Proctitis [Unknown]
  - Leukopenia [Unknown]
  - Anaemia [Unknown]
